FAERS Safety Report 6890394-X (Version None)
Quarter: 2010Q3

REPORT INFORMATION
  Report Type: 
  Country: None (occurrence: None)
  Receive Date: 20100730
  Receipt Date: 20081013
  Transmission Date: 20110219
  Serious: Yes (Hospitalization, Other)
  Sender: FDA-Public Use
  Company Number: US-PFIZER INC-2008085953

PATIENT
  Sex: Male
  Weight: 73 kg

DRUGS (7)
  1. LIPITOR [Suspect]
     Indication: BLOOD CHOLESTEROL INCREASED
     Route: 048
     Dates: end: 20081010
  2. NIACIN [Concomitant]
  3. ASPIRIN [Concomitant]
  4. COZAAR [Concomitant]
  5. CASODEX [Concomitant]
  6. LUPRON [Concomitant]
     Route: 058
  7. SELENIUM [Concomitant]

REACTIONS (1)
  - RHABDOMYOLYSIS [None]
